FAERS Safety Report 22597052 (Version 2)
Quarter: 2023Q2

REPORT INFORMATION
  Report Type: Spontaneous
  Country: JP (occurrence: JP)
  Receive Date: 20230613
  Receipt Date: 20230615
  Transmission Date: 20230721
  Serious: Yes (Hospitalization)
  Sender: FDA-Public Use
  Company Number: JP-002147023-NVSJ2023JP009420

PATIENT
  Age: 86 Year
  Sex: Female

DRUGS (12)
  1. XYLOCAINE [Suspect]
     Active Substance: LIDOCAINE HYDROCHLORIDE
     Indication: Local anaesthesia
     Dosage: UNK
     Route: 065
  2. XYLOCAINE [Suspect]
     Active Substance: LIDOCAINE HYDROCHLORIDE
     Indication: Local anaesthesia
     Dosage: UNK
     Route: 065
  3. DAPSONE [Suspect]
     Active Substance: DAPSONE
     Indication: Psoriasis
     Dosage: UNK
     Route: 048
  4. CARBOCYSTEINE [Suspect]
     Active Substance: CARBOCYSTEINE
     Indication: Bronchitis
     Dosage: UNK
     Route: 048
  5. CARBOCYSTEINE [Suspect]
     Active Substance: CARBOCYSTEINE
     Indication: Upper respiratory tract inflammation
  6. CLARITHROMYCIN [Suspect]
     Active Substance: CLARITHROMYCIN
     Indication: Bronchitis
     Dosage: UNK
     Route: 065
  7. BUDESONIDE [Concomitant]
     Active Substance: BUDESONIDE
     Indication: Product used for unknown indication
     Dosage: UNK
     Route: 065
  8. ESOMEPRAZOLE [Concomitant]
     Active Substance: ESOMEPRAZOLE
     Indication: Product used for unknown indication
     Dosage: UNK
     Route: 065
  9. FEXOFENADINE [Concomitant]
     Active Substance: FEXOFENADINE HYDROCHLORIDE
     Indication: Product used for unknown indication
     Dosage: UNK
     Route: 065
  10. AMLODIPINE [Concomitant]
     Active Substance: AMLODIPINE BESYLATE
     Indication: Product used for unknown indication
     Dosage: UNK
     Route: 065
  11. LEVOTHYROXINE SODIUM [Concomitant]
     Active Substance: LEVOTHYROXINE SODIUM
     Indication: Product used for unknown indication
     Dosage: UNK
     Route: 065
  12. ACETAMINOPHEN [Concomitant]
     Active Substance: ACETAMINOPHEN
     Indication: Upper respiratory tract inflammation
     Dosage: UNK
     Route: 048

REACTIONS (2)
  - Methaemoglobinaemia [Recovering/Resolving]
  - Oxygen saturation decreased [Recovering/Resolving]
